FAERS Safety Report 6465286-0 (Version None)
Quarter: 2009Q4

REPORT INFORMATION
  Report Type: 
  Country: None (occurrence: None)
  Receive Date: 20091201
  Receipt Date: 20090306
  Transmission Date: 20100525
  Serious: No
  Sender: FDA-Public Use
  Company Number: US-AMGEN-KDL215669

PATIENT
  Sex: Male

DRUGS (2)
  1. ENBREL [Suspect]
     Indication: ANKYLOSING SPONDYLITIS
     Route: 058
     Dates: start: 20061001
  2. METHOTREXATE [Concomitant]
     Dates: start: 20070101

REACTIONS (2)
  - BLOOD GLUCOSE DECREASED [None]
  - FATIGUE [None]
